FAERS Safety Report 6293189-3 (Version None)
Quarter: 2009Q3

REPORT INFORMATION
  Report Type: 
  Country: None (occurrence: None)
  Receive Date: 20090731
  Receipt Date: 20090722
  Transmission Date: 20100115
  Serious: Yes (Other)
  Sender: FDA-Public Use
  Company Number: US-JNJCH-2009017241

PATIENT
  Sex: Female
  Weight: 77.1 kg

DRUGS (3)
  1. NEOSPORIN [Suspect]
     Indication: SKIN WRINKLING
     Dosage: TEXT:UNSPECIFIED ALMOST DAILY
     Route: 061
  2. HYDROCHLOROTHIAZIDE [Concomitant]
     Indication: HYPERTENSION
     Dosage: TEXT:1 TABLET DAILY
     Route: 065
  3. SYNTHROID [Concomitant]
     Indication: HYPERTHYROIDISM
     Dosage: TEXT:1 TABLET DAILY
     Route: 065

REACTIONS (5)
  - DRUG INEFFECTIVE [None]
  - INCORRECT DRUG ADMINISTRATION DURATION [None]
  - OFF LABEL USE [None]
  - VISUAL ACUITY REDUCED [None]
  - WRONG TECHNIQUE IN DRUG USAGE PROCESS [None]
